FAERS Safety Report 8350148-4 (Version None)
Quarter: 2012Q2

REPORT INFORMATION
  Report Type: 
  Country: None (occurrence: None)
  Receive Date: 20120510
  Receipt Date: 20120507
  Transmission Date: 20120825
  Serious: Yes (Other)
  Sender: FDA-Public Use
  Company Number: HU-ROCHE-1066655

PATIENT
  Sex: Female
  Weight: 91 kg

DRUGS (3)
  1. PEGASYS [Suspect]
     Indication: PRODUCT USED FOR UNKNOWN INDICATION
     Dosage: SYRINGE
     Route: 058
     Dates: start: 20120203, end: 20120504
  2. COPEGUS [Suspect]
     Indication: PRODUCT USED FOR UNKNOWN INDICATION
     Route: 048
     Dates: start: 20120203, end: 20120502
  3. PROPOLIS [Concomitant]
     Dates: start: 20120203, end: 20120420

REACTIONS (1)
  - PHOTOSENSITIVITY REACTION [None]
